FAERS Safety Report 8013804-3 (Version None)
Quarter: 2011Q4

REPORT INFORMATION
  Report Type: 
  Country: None (occurrence: None)
  Receive Date: 20111229
  Receipt Date: 20111227
  Transmission Date: 20120403
  Serious: Yes (Death)
  Sender: FDA-Public Use
  Company Number: MK-ROCHE-787397

PATIENT
  Sex: Female
  Weight: 68 kg

DRUGS (2)
  1. PEGINTERFERON ALFA-2A [Suspect]
     Indication: HEPATITIS C
     Dosage: DOSE: 180
     Route: 058
     Dates: start: 20101001, end: 20110311
  2. COPEGUS [Suspect]
     Indication: HEPATITIS C
     Dosage: DOSE: 800
     Route: 048
     Dates: start: 20101001, end: 20110317

REACTIONS (1)
  - COMPLETED SUICIDE [None]
